FAERS Safety Report 7631752-5 (Version None)
Quarter: 2011Q3

REPORT INFORMATION
  Report Type: 
  Country: None (occurrence: None)
  Receive Date: 20110725
  Receipt Date: 20110304
  Transmission Date: 20111222
  Serious: No
  Sender: FDA-Public Use
  Company Number: US-BRISTOL-MYERS SQUIBB COMPANY-15589260

PATIENT
  Sex: Female

DRUGS (6)
  1. BACLOFEN [Concomitant]
  2. PERCOCET [Concomitant]
  3. COUMADIN [Suspect]
     Dosage: THERAPY STARTED 1 YEAR AGO
  4. NAPROXEN [Interacting]
  5. DILTIAZEM HCL [Concomitant]
  6. LORAZEPAM [Concomitant]

REACTIONS (3)
  - DRY MOUTH [None]
  - DRUG INTERACTION [None]
  - BLADDER DISORDER [None]
